FAERS Safety Report 20641317 (Version 1)
Quarter: 2022Q1

REPORT INFORMATION
  Report Type: Spontaneous
  Country: US (occurrence: US)
  Receive Date: 20220328
  Receipt Date: 20220328
  Transmission Date: 20220423
  Serious: No
  Sender: FDA-Public Use
  Company Number: US-JNJFOC-20220340185

PATIENT

DRUGS (1)
  1. INVEGA [Suspect]
     Active Substance: PALIPERIDONE
     Indication: Schizoaffective disorder
     Route: 048

REACTIONS (6)
  - Dry mouth [Unknown]
  - Sleep disorder [Unknown]
  - Asthenia [Unknown]
  - Osteoarthritis [Unknown]
  - Polydipsia [Unknown]
  - Blood glucose decreased [Unknown]
